FAERS Safety Report 4649985-9 (Version None)
Quarter: 2005Q2

REPORT INFORMATION
  Report Type: 
  Country: None (occurrence: None)
  Receive Date: 20050502
  Receipt Date: 20050321
  Transmission Date: 20051028
  Serious: Yes (Other)
  Sender: FDA-Public Use
  Company Number: PHNR2005AU00667

PATIENT
  Age: 26 Year
  Sex: Female

DRUGS (2)
  1. CLOZARIL [Suspect]
     Indication: SCHIZOPHRENIA
     Dosage: UNK, UNK
     Dates: start: 20030123
  2. SOLIAN [Suspect]

REACTIONS (6)
  - AMENORRHOEA [None]
  - DRUG INTERACTION [None]
  - DYSMENORRHOEA [None]
  - GALACTORRHOEA [None]
  - HYPERPROLACTINAEMIA [None]
  - OLIGOMENORRHOEA [None]
